FAERS Safety Report 4547462-7 (Version None)
Quarter: 2005Q1

REPORT INFORMATION
  Report Type: 
  Country: None (occurrence: None)
  Receive Date: 20050107
  Receipt Date: 20050104
  Transmission Date: 20050727
  Serious: Yes (Other)
  Sender: FDA-Public Use
  Company Number: GB-GLAXOSMITHKLINE-B0363309A

PATIENT
  Age: 50 Year
  Sex: Male
  Weight: 82.55 kg

DRUGS (1)
  1. RANITIDINE [Suspect]
     Dosage: 150MG TWICE PER DAY
     Route: 048
     Dates: start: 20020101, end: 20040101

REACTIONS (1)
  - GLOMERULONEPHRITIS PROLIFERATIVE [None]
